FAERS Safety Report 11336194 (Version 1)
Quarter: 2015Q3

REPORT INFORMATION
  Report Type: Spontaneous
  Country: US (occurrence: None)
  Receive Date: 20150731
  Receipt Date: 20150731
  Transmission Date: 20151125
  Serious: No
  Sender: FDA-Public Use
  Company Number: None

PATIENT
  Age: 91 Year
  Sex: Male
  Weight: 76.8 kg

DRUGS (1)
  1. BUDESONIDE/FORMOTEROL [Suspect]
     Active Substance: BUDESONIDE\FORMOTEROL
     Indication: EMPHYSEMA
     Dosage: 2 PUFFS
     Route: 055
     Dates: start: 20120326, end: 20120404

REACTIONS (2)
  - Palpitations [None]
  - Anaphylactic reaction [None]

NARRATIVE: CASE EVENT DATE: 20120330
